FAERS Safety Report 5465299-1 (Version None)
Quarter: 2007Q3

REPORT INFORMATION
  Report Type: 
  Country: None (occurrence: None)
  Receive Date: 20070920
  Receipt Date: 20070920
  Transmission Date: 20080115
  Serious: Yes (Other)
  Sender: FDA-Public Use
  Company Number: None

PATIENT
  Age: 62 Year
  Sex: Male
  Weight: 75 kg

DRUGS (6)
  1. FENTANYL TRANSDERMAL SYSTEM [Suspect]
     Indication: ANXIETY
     Dosage: 50MCG EVERY 72 HRS TRANSDERMAL
     Route: 062
     Dates: end: 20070831
  2. FENTANYL TRANSDERMAL SYSTEM [Suspect]
     Indication: DEPRESSION
     Dosage: 50MCG EVERY 72 HRS TRANSDERMAL
     Route: 062
     Dates: end: 20070831
  3. PROZAC [Suspect]
     Indication: PAIN
     Dosage: 20 MG DAILY ORAL
     Route: 048
     Dates: end: 20070831
  4. SONATA [Suspect]
     Dosage: 10MG AT BEDTIME ORAL
     Route: 048
     Dates: end: 20070831
  5. OXYCODONE 5-15 MG [Suspect]
     Dosage: 5-15 MG EVERY 3 HOURS PRN ORAL
     Route: 048
     Dates: end: 20070831
  6. XANAX [Suspect]
     Dosage: 0.5 MG EVERY 8 HRS PRN ORAL
     Route: 048
     Dates: end: 20070831

REACTIONS (6)
  - BLOOD PH DECREASED [None]
  - MENTAL STATUS CHANGES [None]
  - PCO2 INCREASED [None]
  - PNEUMONIA [None]
  - RENAL IMPAIRMENT [None]
  - SEDATION [None]
